FAERS Safety Report 18382920 (Version 2)
Quarter: 2020Q4

REPORT INFORMATION
  Report Type: Spontaneous
  Country: US (occurrence: US)
  Receive Date: 20201014
  Receipt Date: 20201117
  Transmission Date: 20210114
  Serious: Yes (Life-Threatening, Hospitalization, Other)
  Sender: FDA-Public Use
  Company Number: US-AMGEN-USASP2020164695

PATIENT

DRUGS (5)
  1. DOXORUBICIN [Suspect]
     Active Substance: DOXORUBICIN
     Indication: ENDOMETRIAL CANCER
     Dosage: 50 MILLIGRAM/SQ. METER, Q3WK
     Route: 042
  2. CYCLOPHOSPHAMIDE. [Suspect]
     Active Substance: CYCLOPHOSPHAMIDE
     Indication: ENDOMETRIAL CANCER
     Dosage: 750 MILLIGRAM/SQ. METER, Q3WK
     Route: 042
  3. FILGRASTIM [Suspect]
     Active Substance: FILGRASTIM
     Indication: ENDOMETRIAL CANCER
     Dosage: 6 MICROGRAM/KILOGRAM, QD
     Route: 058
  4. ONDANSETRON [Concomitant]
     Active Substance: ONDANSETRON
     Indication: PROPHYLAXIS
     Dosage: 0.15 MILLIGRAM/KILOGRAM
     Route: 042
  5. CISPLATINUM [Suspect]
     Active Substance: CISPLATIN
     Indication: ENDOMETRIAL CANCER
     Dosage: 50 MILLIGRAM/SQ. METER, Q3WK
     Route: 042

REACTIONS (17)
  - Neutropenia [Unknown]
  - Anaemia [Unknown]
  - Febrile neutropenia [Unknown]
  - Nausea [Unknown]
  - Vomiting [Unknown]
  - Endometrial cancer recurrent [Unknown]
  - Pseudomembranous colitis [Unknown]
  - Ejection fraction decreased [Unknown]
  - Platelet toxicity [Unknown]
  - Granulocytopenia [Unknown]
  - Leukopenia [Unknown]
  - Neurotoxicity [Unknown]
  - Endometrial cancer [Unknown]
  - Nephropathy toxic [Unknown]
  - Alopecia [Unknown]
  - Thrombocytopenia [Unknown]
  - Gastrointestinal inflammation [Unknown]
